FAERS Safety Report 16896030 (Version 1)
Quarter: 2019Q4

REPORT INFORMATION
  Report Type: Spontaneous
  Country: US (occurrence: US)
  Receive Date: 20190814
  Receipt Date: 20190814
  Transmission Date: 20200122
  Serious: Yes (Hospitalization)
  Sender: FDA-Public Use
  Company Number: None

PATIENT
  Age: 60 Year
  Sex: Male

DRUGS (12)
  1. CELECOXIB. [Concomitant]
     Active Substance: CELECOXIB
  2. ALPRAZOLAM. [Concomitant]
     Active Substance: ALPRAZOLAM
  3. HYDROCO/APAP [Concomitant]
     Active Substance: ACETAMINOPHEN\HYDROCODONE
  4. NORTRIPTYLIN [Concomitant]
     Active Substance: NORTRIPTYLINE
  5. TRAMADOL. [Concomitant]
     Active Substance: TRAMADOL
  6. AMLODIPINE [Concomitant]
     Active Substance: AMLODIPINE BESYLATE
  7. AZATHIOPRINE. [Concomitant]
     Active Substance: AZATHIOPRINE
  8. BUDESONIDE. [Concomitant]
     Active Substance: BUDESONIDE
  9. ZOLPIDEM [Concomitant]
     Active Substance: ZOLPIDEM TARTRATE
  10. ARIPIPRAZOLE. [Concomitant]
     Active Substance: ARIPIPRAZOLE
  11. STELARA [Suspect]
     Active Substance: USTEKINUMAB
  12. ESOMEPRA MAG [Concomitant]

REACTIONS (1)
  - Clostridium difficile infection [None]

NARRATIVE: CASE EVENT DATE: 2019
